FAERS Safety Report 6313401-1 (Version None)
Quarter: 2009Q3

REPORT INFORMATION
  Report Type: 
  Country: None (occurrence: None)
  Receive Date: 20090818
  Receipt Date: 20090806
  Transmission Date: 20100115
  Serious: Yes (Death)
  Sender: FDA-Public Use
  Company Number: JP-PFIZER INC-2009253018

PATIENT
  Age: 24 Year

DRUGS (12)
  1. ZITHROMAC SR [Suspect]
     Indication: NASOPHARYNGITIS
     Route: 048
  2. LOXOPROFEN SODIUM [Suspect]
     Indication: NASOPHARYNGITIS
  3. DEPAKENE [Concomitant]
     Dosage: UNK
     Route: 048
     Dates: start: 20010101
  4. TEGRETOL [Concomitant]
     Dosage: UNK
     Route: 048
     Dates: start: 20010101
  5. SERENACE [Concomitant]
     Dosage: UNK
     Route: 048
     Dates: start: 20010101
  6. EXCEGRAN [Concomitant]
     Dosage: UNK
     Route: 048
     Dates: start: 20010101
  7. ARTANE [Concomitant]
     Dosage: UNK
     Route: 048
     Dates: start: 20010101
  8. HIRNAMIN [Concomitant]
     Dosage: UNK
     Route: 048
     Dates: start: 20010101
  9. TRYPTANOL [Concomitant]
     Dosage: UNK
     Route: 048
     Dates: start: 20010101
  10. BENZALIN [Concomitant]
     Dosage: UNK
     Route: 048
     Dates: start: 20010101
  11. MAGNESIUM OXIDE [Concomitant]
     Dosage: UNK
     Route: 048
     Dates: start: 20010101
  12. LAXOBERON [Concomitant]
     Dosage: UNK
     Route: 048
     Dates: start: 20010101

REACTIONS (3)
  - CARDIAC FAILURE [None]
  - PNEUMONIA [None]
  - SNORING [None]
